FAERS Safety Report 9773011 (Version 2)
Quarter: 2014Q1

REPORT INFORMATION
  Report Type: Spontaneous
  Country: US (occurrence: US)
  Receive Date: 20131219
  Receipt Date: 20140123
  Transmission Date: 20141002
  Serious: Yes (Other)
  Sender: FDA-Public Use
  Company Number: US-JHP PHARMACEUTICALS, LLC-JHP201300762

PATIENT
  Sex: 0

DRUGS (2)
  1. KETALAR [Suspect]
     Indication: BACK PAIN
     Dosage: 50 MG UP TO 5X/DAY PRN
     Route: 030
  2. KETALAR [Suspect]
     Dosage: 50 MG UP TO 5X/DAY PRN
     Route: 030

REACTIONS (5)
  - Disorientation [Recovered/Resolved]
  - Hallucination [Recovered/Resolved]
  - Convulsion [Recovered/Resolved]
  - Paraesthesia [Recovering/Resolving]
  - Off label use [Recovered/Resolved]
